FAERS Safety Report 6546398-X (Version None)
Quarter: 2010Q1

REPORT INFORMATION
  Report Type: 
  Country: None (occurrence: None)
  Receive Date: 20100119
  Receipt Date: 20100104
  Transmission Date: 20100710
  Serious: Yes (Death, Hospitalization)
  Sender: FDA-Public Use
  Company Number: 2009AC000067

PATIENT
  Age: 38 Year
  Sex: Female
  Weight: 76.2043 kg

DRUGS (44)
  1. DIGOXIN [Suspect]
     Dosage: 12.5 MG;QD;PO
     Route: 048
     Dates: start: 20000101
  2. LASIX [Concomitant]
  3. TOPROL-XL [Concomitant]
  4. LISINOPRIL [Concomitant]
  5. ZOLOFT [Concomitant]
  6. AMIODARONE HCL [Concomitant]
  7. ASPIRIN [Concomitant]
  8. COREG [Concomitant]
  9. SULFASALAZINE [Concomitant]
  10. LEVOTHYROXINE SODIUM [Concomitant]
  11. SPIRIVA [Concomitant]
  12. NASONEX [Concomitant]
  13. ALVERT [Concomitant]
  14. COQ10 [Concomitant]
  15. CALCIUM [Concomitant]
  16. MAGNESIUM [Concomitant]
  17. COUMADIN [Concomitant]
  18. ALDACTONE [Concomitant]
  19. LEXAPRO [Concomitant]
  20. FUROSEMIDE [Concomitant]
  21. TOPROL-XL [Concomitant]
  22. ZOLOFT [Concomitant]
  23. AMIODARONE [Concomitant]
  24. LISINOPRIL [Concomitant]
  25. CARVEDILOL [Concomitant]
  26. SYNTHROID [Concomitant]
  27. CALCIUM [Concomitant]
  28. ZINC [Concomitant]
  29. MAGNESIUM [Concomitant]
  30. POTASSIUM PHOSPHATES [Concomitant]
  31. COENZYME Q10 [Concomitant]
  32. VITAMIN C [Concomitant]
  33. VITAMIN B COMPLEX CAP [Concomitant]
  34. COREG [Concomitant]
  35. LEXAPRO [Concomitant]
  36. ALDACTONE [Concomitant]
  37. LEVOTHYROXINE SODIUM [Concomitant]
  38. SPIRIVA [Concomitant]
  39. NASONEX [Concomitant]
  40. DOPAMINE HCL [Concomitant]
  41. LEVOPHED [Concomitant]
  42. EPINEPHRINE [Concomitant]
  43. LIDOCAINE [Concomitant]
  44. BICARBONATE [Concomitant]

REACTIONS (25)
  - ANXIETY [None]
  - BRONCHITIS [None]
  - CARDIAC FAILURE CONGESTIVE [None]
  - COLITIS [None]
  - CONGESTIVE CARDIOMYOPATHY [None]
  - DEHYDRATION [None]
  - DEPRESSION [None]
  - ECONOMIC PROBLEM [None]
  - EMPHYSEMA [None]
  - GAIT DISTURBANCE [None]
  - HEPATIC CONGESTION [None]
  - HEPATIC STEATOSIS [None]
  - INJURY [None]
  - INTRACARDIAC THROMBUS [None]
  - PERICARDIAL EFFUSION [None]
  - PROTHROMBIN TIME PROLONGED [None]
  - PULMONARY OEDEMA [None]
  - RENAL FAILURE [None]
  - RESPIRATORY ARREST [None]
  - SEPSIS [None]
  - SINUSITIS [None]
  - SURGERY [None]
  - THERAPEUTIC AGENT TOXICITY [None]
  - VENTRICULAR FIBRILLATION [None]
  - VENTRICULAR TACHYCARDIA [None]
